FAERS Safety Report 19433404 (Version 3)
Quarter: 2021Q3

REPORT INFORMATION
  Report Type: Spontaneous
  Country: BA (occurrence: BA)
  Receive Date: 20210617
  Receipt Date: 20210727
  Transmission Date: 20211014
  Serious: Yes (Other)
  Sender: FDA-Public Use
  Company Number: BA-009507513-2106BIH003487

PATIENT
  Age: 47 Year
  Sex: Female
  Weight: 85 kg

DRUGS (8)
  1. EGLONYL [Concomitant]
     Active Substance: SULPIRIDE
     Indication: SCHIZOPHRENIA
     Dosage: 1 TABLET DAILY
     Route: 048
  2. AMARYL [Concomitant]
     Active Substance: GLIMEPIRIDE
     Indication: DIABETES MELLITUS
     Dosage: 1 TABLET DAILY
  3. PRESOLOL [METOPROLOL TARTRATE] [Concomitant]
     Indication: HYPERTENSION
     Dosage: 0,5 TABLET DAILY
     Route: 048
  4. JANUMET [Suspect]
     Active Substance: METFORMIN HYDROCHLORIDE\SITAGLIPTIN PHOSPHATE
     Dosage: 3  TIMES DAILY 1 TABLET
     Route: 048
  5. AMARYL [Concomitant]
     Active Substance: GLIMEPIRIDE
     Dosage: 2 TIMES DAILY 1 TABLET.
  6. JANUMET [Suspect]
     Active Substance: METFORMIN HYDROCHLORIDE\SITAGLIPTIN PHOSPHATE
     Indication: DIABETES MELLITUS
     Dosage: 2 TIMES DAILY 1 TABLET
     Route: 048
     Dates: start: 202105, end: 20210607
  7. LADIOMIL [MAPROTILINE MESILATE] [Concomitant]
     Indication: SCHIZOPHRENIA
     Dosage: 1 TABLET DAILY
     Route: 048
  8. DIAZEPAM. [Concomitant]
     Active Substance: DIAZEPAM
     Indication: SCHIZOPHRENIA
     Dosage: 2 TIMES DAILY 0,5 TABLET DAILY
     Route: 048

REACTIONS (7)
  - Drug hypersensitivity [Unknown]
  - Intentional overdose [Unknown]
  - Skin lesion [Recovering/Resolving]
  - Intentional product misuse [Unknown]
  - Erythema [Recovering/Resolving]
  - Scab [Recovering/Resolving]
  - Drug ineffective [Unknown]

NARRATIVE: CASE EVENT DATE: 20210605
